FAERS Safety Report 23161881 (Version 1)
Quarter: 2023Q4

REPORT INFORMATION
  Report Type: Spontaneous
  Country: JP (occurrence: JP)
  Receive Date: 20231109
  Receipt Date: 20231109
  Transmission Date: 20240110
  Serious: Yes (Other)
  Sender: FDA-Public Use
  Company Number: JP-TAKEDA-2023TJP014565

PATIENT
  Age: 6 Decade
  Sex: Female

DRUGS (1)
  1. VECTIBIX [Suspect]
     Active Substance: PANITUMUMAB
     Indication: Colon cancer
     Dosage: UNK
     Route: 042

REACTIONS (3)
  - Metastases to lung [Recovering/Resolving]
  - Hypomagnesaemia [Recovered/Resolved]
  - Dermatitis acneiform [Not Recovered/Not Resolved]
